FAERS Safety Report 4646629-7 (Version None)
Quarter: 2005Q2

REPORT INFORMATION
  Report Type: 
  Country: None (occurrence: None)
  Receive Date: 20050427
  Receipt Date: 20050425
  Transmission Date: 20051028
  Serious: Yes (Life-Threatening, Hospitalization, Disabling)
  Sender: FDA-Public Use
  Company Number: US-MERCK-0504USA04364

PATIENT
  Age: 71 Year
  Sex: Female

DRUGS (10)
  1. CALCIUM (UNSPECIFIED) [Concomitant]
     Route: 065
  2. FOSAMAX [Suspect]
     Indication: OSTEOPOROSIS
     Route: 048
     Dates: start: 19990101
  3. FOSAMAX [Suspect]
     Indication: OSTEOARTHRITIS
     Route: 048
     Dates: start: 19990101
  4. LUMIGAN [Concomitant]
     Route: 065
  5. ATIVAN [Concomitant]
     Route: 065
  6. ROCALTROL [Concomitant]
     Route: 065
  7. ASPIRIN [Concomitant]
     Route: 065
  8. PRILOSEC [Concomitant]
     Route: 065
  9. NEURONTIN [Concomitant]
     Route: 065
  10. XANTHOPHYLL [Concomitant]
     Route: 065

REACTIONS (2)
  - BREAST CANCER [None]
  - BREAST CANCER FEMALE [None]
